FAERS Safety Report 4607100-1 (Version None)
Quarter: 2005Q1

REPORT INFORMATION
  Report Type: 
  Country: None (occurrence: None)
  Receive Date: 20050314
  Receipt Date: 20050304
  Transmission Date: 20050727
  Serious: Yes (Hospitalization)
  Sender: FDA-Public Use
  Company Number: US-AMGEN-US119714

PATIENT
  Sex: Female

DRUGS (2)
  1. PROCRIT [Suspect]
     Indication: RENAL FAILURE CHRONIC
     Dates: start: 20040401, end: 20050201
  2. BLOOD CELLS, PACKED HUMAN [Concomitant]
     Dates: start: 20040401, end: 20040401

REACTIONS (2)
  - DEHYDRATION [None]
  - TRANSIENT ISCHAEMIC ATTACK [None]
